FAERS Safety Report 25610137 (Version 1)
Quarter: 2025Q3

REPORT INFORMATION
  Report Type: Report from Study
  Country: US (occurrence: US)
  Receive Date: 20250728
  Receipt Date: 20250728
  Transmission Date: 20251021
  Serious: Yes (Hospitalization)
  Sender: GILEAD
  Company Number: US-GILEAD-2025-0717597

PATIENT
  Sex: Female

DRUGS (3)
  1. AMBRISENTAN [Suspect]
     Active Substance: AMBRISENTAN
     Indication: Pulmonary hypertension
     Dosage: 5 MG, QD
     Route: 048
     Dates: start: 20250626
  2. AMBRISENTAN [Suspect]
     Active Substance: AMBRISENTAN
     Indication: Pulmonary arterial hypertension
  3. CYMBALTA [Concomitant]
     Active Substance: DULOXETINE HYDROCHLORIDE

REACTIONS (12)
  - Mental disorder [Unknown]
  - Haemoglobin abnormal [Unknown]
  - Photosensitivity reaction [Unknown]
  - Back pain [Unknown]
  - Dyspepsia [Unknown]
  - Pruritus [Unknown]
  - Feeling cold [Unknown]
  - Tonsillolith [Unknown]
  - Pharyngeal swelling [Unknown]
  - Abdominal pain upper [Unknown]
  - Hypotension [Unknown]
  - Dizziness [Unknown]
